FAERS Safety Report 15262731 (Version 1)
Quarter: 2018Q3

REPORT INFORMATION
  Report Type: Report from Study
  Country: US (occurrence: US)
  Receive Date: 20180809
  Receipt Date: 20180809
  Transmission Date: 20181010
  Serious: No
  Sender: FDA-Public Use
  Company Number: US-AMGEN-USASL2018107720

PATIENT
  Sex: Female

DRUGS (1)
  1. ENBREL [Suspect]
     Active Substance: ETANERCEPT
     Indication: PSORIATIC ARTHROPATHY
     Dosage: 50 MG, QWK
     Route: 065

REACTIONS (8)
  - Photosensitivity reaction [Unknown]
  - White blood cell count increased [Unknown]
  - Lethargy [Unknown]
  - Sunburn [Unknown]
  - Herpes virus infection [Not Recovered/Not Resolved]
  - Joint effusion [Unknown]
  - Genital herpes [Not Recovered/Not Resolved]
  - Pain [Unknown]
